FAERS Safety Report 14769023 (Version 1)
Quarter: 2018Q2

REPORT INFORMATION
  Report Type: Other
  Country: IT (occurrence: IT)
  Receive Date: 20180417
  Receipt Date: 20180417
  Transmission Date: 20180711
  Serious: Yes (Other)
  Sender: FDA-Public Use
  Company Number: IT-IGSA-SR10006163

PATIENT
  Age: 64 Year
  Sex: Female

DRUGS (1)
  1. FLEBOGAMMA [Suspect]
     Active Substance: HUMAN IMMUNOGLOBULIN G
     Indication: UNDIFFERENTIATED CONNECTIVE TISSUE DISEASE
     Dosage: 25 G, UNK
     Route: 042
     Dates: start: 20140130, end: 20160504

REACTIONS (1)
  - Hyperglycaemia [Recovering/Resolving]
